FAERS Safety Report 8207572-X (Version None)
Quarter: 2012Q1

REPORT INFORMATION
  Report Type: 
  Country: None (occurrence: None)
  Receive Date: 20120314
  Receipt Date: 20120307
  Transmission Date: 20120608
  Serious: Yes (Hospitalization)
  Sender: FDA-Public Use
  Company Number: JP-SANOFI-AVENTIS-2011SA077921

PATIENT
  Age: 78 Year
  Sex: Male
  Weight: 60 kg

DRUGS (26)
  1. HEPARIN [Concomitant]
     Dosage: DOSE:15000 UNIT(S)
     Route: 042
     Dates: start: 20100404, end: 20100406
  2. PLAVIX [Suspect]
     Route: 065
     Dates: start: 20100405
  3. HEPARIN [Concomitant]
     Indication: PERCUTANEOUS CORONARY INTERVENTION
     Dosage: DOSE:8000 UNIT(S)
     Route: 042
     Dates: start: 20100404, end: 20100404
  4. CARVEDILOL [Concomitant]
     Route: 048
     Dates: start: 20100423, end: 20100425
  5. DOBUTAMINE HCL [Concomitant]
     Dosage: STRENGTH:0.3%
     Dates: start: 20100408, end: 20100415
  6. CLEANAL [Concomitant]
     Indication: COUGH
     Route: 048
     Dates: start: 20100407
  7. METHYCOBAL [Concomitant]
     Route: 048
     Dates: start: 20100412
  8. LASIX [Concomitant]
     Dates: start: 20100405, end: 20100415
  9. DOPAMINE HCL [Concomitant]
     Dosage: STRENGTH:0.3%
     Dates: start: 20100406, end: 20100415
  10. WARFARIN SODIUM [Concomitant]
     Route: 048
     Dates: start: 20100422
  11. ASPIRIN [Concomitant]
     Indication: ACUTE MYOCARDIAL INFARCTION
     Route: 048
     Dates: start: 20100404, end: 20100404
  12. ASPIRIN [Concomitant]
     Route: 048
     Dates: start: 20100405
  13. HEPARIN [Concomitant]
     Indication: ACUTE MYOCARDIAL INFARCTION
     Dosage: DOSE:8000 UNIT(S)
     Route: 042
     Dates: start: 20100404, end: 20100404
  14. CARVEDILOL [Concomitant]
     Indication: ACUTE MYOCARDIAL INFARCTION
     Route: 048
     Dates: start: 20100406, end: 20100422
  15. PLAVIX [Suspect]
     Indication: ACUTE MYOCARDIAL INFARCTION
     Dosage: LOADING TREATMENT
     Route: 065
     Dates: start: 20100404, end: 20100404
  16. HEPARIN [Concomitant]
     Dosage: DOSE:15000 UNIT(S)
     Route: 042
     Dates: start: 20100404, end: 20100406
  17. RABEPRAZOLE SODIUM [Concomitant]
     Route: 048
     Dates: start: 20100405
  18. GLUCOBAY [Concomitant]
     Route: 048
     Dates: start: 20100407
  19. FUROSEMIDE [Concomitant]
     Route: 048
     Dates: start: 20100416
  20. MAGNESIUM OXIDE [Concomitant]
     Route: 048
     Dates: start: 20100405
  21. ENALAPRIL MALEATE [Concomitant]
     Indication: ACUTE MYOCARDIAL INFARCTION
     Route: 048
     Dates: start: 20100406
  22. ASPIRIN [Concomitant]
     Route: 048
     Dates: start: 20100405
  23. SIGMART [Concomitant]
     Dates: start: 20100404, end: 20100406
  24. ASPIRIN [Concomitant]
     Indication: PERCUTANEOUS CORONARY INTERVENTION
     Route: 048
     Dates: start: 20100404, end: 20100404
  25. CARVEDILOL [Concomitant]
     Route: 048
     Dates: start: 20100426
  26. ATORVASTATIN [Concomitant]
     Route: 048
     Dates: start: 20100405

REACTIONS (1)
  - CARDIAC FAILURE CONGESTIVE [None]
